FAERS Safety Report 15756917 (Version 1)
Quarter: 2018Q4

REPORT INFORMATION
  Report Type: Spontaneous
  Country: US (occurrence: US)
  Receive Date: 20181206
  Receipt Date: 20181206
  Transmission Date: 20190205
  Serious: No
  Sender: FDA-Public Use
  Company Number: None

PATIENT
  Age: 61 Year
  Sex: Female

DRUGS (1)
  1. GLEEVEC [Suspect]
     Active Substance: IMATINIB MESYLATE
     Route: 048
     Dates: start: 201808

REACTIONS (5)
  - Erythema [None]
  - Wheezing [None]
  - Fatigue [None]
  - Muscle spasms [None]
  - Tenderness [None]

NARRATIVE: CASE EVENT DATE: 20181205
